FAERS Safety Report 13324614 (Version 29)
Quarter: 2019Q2

REPORT INFORMATION
  Report Type: Report from Study
  Country: CA (occurrence: CA)
  Receive Date: 20170310
  Receipt Date: 20190426
  Transmission Date: 20190711
  Serious: Yes (Other)
  Sender: FDA-Public Use
  Company Number: PHHY2016CA071942

PATIENT
  Age: 81 Year
  Sex: Male

DRUGS (14)
  1. COLCHICINE. [Suspect]
     Active Substance: COLCHICINE
     Indication: GOUT
     Dosage: UNK
     Route: 065
  2. FLOVENT [Concomitant]
     Active Substance: FLUTICASONE PROPIONATE
     Indication: PHARYNGEAL DISORDER
     Dosage: 2 DF, (TWO PUFFS) BID
     Route: 055
     Dates: start: 2016
  3. SANDOSTATIN LAR DEPOT [Suspect]
     Active Substance: OCTREOTIDE ACETATE
     Indication: CARCINOID TUMOUR
     Dosage: 30 MG, QMO
     Route: 030
     Dates: start: 20160302
  4. LASIX [Concomitant]
     Active Substance: FUROSEMIDE
     Indication: PERIPHERAL SWELLING
     Dosage: UNK
     Route: 065
  5. XARELTO [Concomitant]
     Active Substance: RIVAROXABAN
     Indication: PRODUCT USED FOR UNKNOWN INDICATION
     Dosage: UNK
     Route: 065
  6. SANDOSTATIN LAR DEPOT [Suspect]
     Active Substance: OCTREOTIDE ACETATE
     Dosage: 30 MG, QMO (EVERY 4 WEEKS)
     Route: 030
     Dates: start: 20180519
  7. SANDOSTATIN LAR DEPOT [Suspect]
     Active Substance: OCTREOTIDE ACETATE
     Dosage: 40 MG, QMO
     Route: 030
  8. DALTEPARIN [Concomitant]
     Active Substance: DALTEPARIN
     Indication: PRODUCT USED FOR UNKNOWN INDICATION
     Dosage: UNK UNK, QD
     Route: 065
     Dates: start: 201801
  9. COMBIVENT [Concomitant]
     Active Substance: ALBUTEROL SULFATE\IPRATROPIUM BROMIDE
     Indication: PHARYNGEAL DISORDER
     Dosage: 2 PUFFS, BID (PRIOR TO INJECTION)
     Route: 055
     Dates: start: 2016
  10. VALSARTAN. [Suspect]
     Active Substance: VALSARTAN
     Indication: HYPERTENSION
     Dosage: 80 MG, QD (HS) (AT BED TIME )
     Route: 048
     Dates: start: 201803
  11. VALSARTAN. [Suspect]
     Active Substance: VALSARTAN
     Dosage: UNK
     Route: 048
  12. SANDOSTATIN LAR DEPOT [Suspect]
     Active Substance: OCTREOTIDE ACETATE
     Dosage: UNK
     Route: 030
     Dates: start: 20161202
  13. SANDOSTATIN LAR DEPOT [Suspect]
     Active Substance: OCTREOTIDE ACETATE
     Dosage: 30 MG, Q3W
     Route: 030
  14. OCTREOTIDE. [Suspect]
     Active Substance: OCTREOTIDE
     Indication: PRODUCT USED FOR UNKNOWN INDICATION
     Dosage: UNK UNK, TID
     Route: 058
     Dates: start: 201801

REACTIONS (50)
  - Tremor [Unknown]
  - Neck pain [Unknown]
  - Bursitis [Unknown]
  - Nasopharyngitis [Not Recovered/Not Resolved]
  - Cough [Recovering/Resolving]
  - Urticaria [Unknown]
  - Nausea [Unknown]
  - Musculoskeletal pain [Not Recovered/Not Resolved]
  - Joint swelling [Recovered/Resolved]
  - Respiratory rate increased [Unknown]
  - Dizziness [Unknown]
  - Hyperhidrosis [Unknown]
  - Road traffic accident [Unknown]
  - Arthralgia [Not Recovered/Not Resolved]
  - Feeling hot [Unknown]
  - Procedural pain [Unknown]
  - Oropharyngeal pain [Unknown]
  - Dyspnoea [Unknown]
  - Dehydration [Unknown]
  - Peripheral swelling [Recovering/Resolving]
  - Anaemia [Unknown]
  - Pallor [Unknown]
  - Epistaxis [Recovered/Resolved]
  - Pain [Unknown]
  - Mass [Unknown]
  - Malaise [Unknown]
  - Injection site rash [Recovered/Resolved]
  - Syncope [Unknown]
  - Hepatic lesion [Unknown]
  - Dry mouth [Unknown]
  - Blood pressure abnormal [Unknown]
  - Inappropriate schedule of product administration [Unknown]
  - Hypertrophic osteoarthropathy [Unknown]
  - Dyskinesia [Unknown]
  - Speech disorder [Unknown]
  - Diarrhoea [Not Recovered/Not Resolved]
  - Asthenia [Unknown]
  - Abdominal pain [Recovering/Resolving]
  - Injection site urticaria [Unknown]
  - Blood pressure systolic increased [Unknown]
  - Gout [Unknown]
  - Hypotension [Unknown]
  - Productive cough [Unknown]
  - Loss of consciousness [Unknown]
  - Blood pressure increased [Unknown]
  - Flushing [Recovering/Resolving]
  - Decreased appetite [Unknown]
  - Blood pressure fluctuation [Unknown]
  - Headache [Unknown]
  - Injection site pruritus [Unknown]

NARRATIVE: CASE EVENT DATE: 20160520
